FAERS Safety Report 19795289 (Version 4)
Quarter: 2021Q3

REPORT INFORMATION
  Report Type: Report from Study
  Country: BE (occurrence: BE)
  Receive Date: 20210906
  Receipt Date: 20210923
  Transmission Date: 20211014
  Serious: Yes (Hospitalization)
  Sender: FDA-Public Use
  Company Number: BE-PFIZER INC-202101069530

PATIENT
  Age: 63 Year
  Sex: Male
  Weight: 79 kg

DRUGS (6)
  1. CYTARABINE. [Suspect]
     Active Substance: CYTARABINE
     Dosage: 2000 MILLIGRAM/SQ. METER, 1Q3W (CYCLE 1?3)
     Route: 042
     Dates: start: 20210805, end: 20210805
  2. CYTARABINE. [Suspect]
     Active Substance: CYTARABINE
     Indication: DIFFUSE LARGE B-CELL LYMPHOMA STAGE III
     Dosage: 2000 MILLIGRAM/SQ. METER, 1Q3W (CYCLE 1?3)
     Route: 042
     Dates: start: 20210804, end: 20210804
  3. RITUXIMAB. [Suspect]
     Active Substance: RITUXIMAB
     Indication: DIFFUSE LARGE B-CELL LYMPHOMA STAGE III
     Dosage: 375 MILLIGRAM/SQ. METER, 1Q3W (CYCLE 1?3), CONCENTRATE FOR SOULTION FOR INFUSION
     Route: 042
     Dates: start: 20210804
  4. EPCORITAMAB. [Suspect]
     Active Substance: EPCORITAMAB
     Indication: DIFFUSE LARGE B-CELL LYMPHOMA STAGE III
     Dosage: PRIMING DOSE: 0.16 MG, SINGLE, DUOBODY?CD3XCD20, CONCENTRATE FOR SOLUTION FOR INJECTION
     Route: 058
     Dates: start: 20210804, end: 20210804
  5. CARBOPLATIN. [Suspect]
     Active Substance: CARBOPLATIN
     Indication: DIFFUSE LARGE B-CELL LYMPHOMA STAGE III
     Dosage: UNK, 1Q3W (CYCLE 1?3), CONCENTRATE FOR SOULTION FOR INFUSION
     Route: 042
     Dates: start: 20210804
  6. DEXAMETHASONE. [Suspect]
     Active Substance: DEXAMETHASONE
     Indication: DIFFUSE LARGE B-CELL LYMPHOMA STAGE III
     Dosage: 40 MG, 1X/DAY, TABLET
     Route: 042
     Dates: start: 20210804, end: 20210807

REACTIONS (1)
  - Acute kidney injury [Recovered/Resolved]

NARRATIVE: CASE EVENT DATE: 20210807
